FAERS Safety Report 9150053 (Version 1)
Quarter: 2013Q1

REPORT INFORMATION
  Report Type: Spontaneous
  Country: US (occurrence: None)
  Receive Date: 20130228
  Receipt Date: 20130228
  Transmission Date: 20140127
  Serious: Yes (Hospitalization)
  Sender: FDA-Public Use
  Company Number: None

PATIENT
  Sex: Male
  Weight: 49.1 kg

DRUGS (1)
  1. CETUXIMAB [Suspect]
     Route: 042

REACTIONS (7)
  - Restlessness [None]
  - Dyspnoea [None]
  - Pain [None]
  - Tachycardia [None]
  - Tachypnoea [None]
  - Hypotension [None]
  - Oxygen saturation decreased [None]
